FAERS Safety Report 22893667 (Version 2)
Quarter: 2024Q1

REPORT INFORMATION
  Report Type: Report from Study
  Country: US (occurrence: US)
  Receive Date: 20230901
  Receipt Date: 20240312
  Transmission Date: 20240410
  Serious: Yes (Other)
  Sender: FDA-Public Use
  Company Number: US-ARGENX-2023-ARGX-US002049

PATIENT

DRUGS (1)
  1. VYVGART [Suspect]
     Active Substance: EFGARTIGIMOD ALFA-FCAB
     Indication: Myasthenia gravis
     Dosage: 10 MG/KG
     Route: 042
     Dates: start: 20221115

REACTIONS (7)
  - Neuropathy peripheral [Unknown]
  - Myasthenia gravis [Unknown]
  - Cataract operation [Unknown]
  - Insomnia [Unknown]
  - Eyelid ptosis [Not Recovered/Not Resolved]
  - Muscle spasms [Unknown]
  - Myasthenia gravis [Not Recovered/Not Resolved]
